FAERS Safety Report 6283378-6 (Version None)
Quarter: 2009Q3

REPORT INFORMATION
  Report Type: 
  Country: None (occurrence: None)
  Receive Date: 20090721
  Receipt Date: 20090721
  Transmission Date: 20100115
  Serious: Yes (Hospitalization)
  Sender: FDA-Public Use
  Company Number: None

PATIENT
  Age: 84 Year
  Sex: Female
  Weight: 56 kg

DRUGS (1)
  1. MEGACE [Suspect]
     Indication: INCREASED APPETITE
     Dosage: 400 MG BID PO
     Route: 048

REACTIONS (1)
  - DEEP VEIN THROMBOSIS [None]
